FAERS Safety Report 8300356-3 (Version None)
Quarter: 2012Q2

REPORT INFORMATION
  Report Type: 
  Country: None (occurrence: None)
  Receive Date: 20120420
  Receipt Date: 20120410
  Transmission Date: 20120825
  Serious: Yes (Other)
  Sender: FDA-Public Use
  Company Number: US-ABBOTT-12P-163-0924797-00

PATIENT
  Sex: Male
  Weight: 69.916 kg

DRUGS (4)
  1. AREDS EYE VITAMINS [Concomitant]
     Indication: MACULAR DEGENERATION
  2. CYTOMEL [Concomitant]
     Indication: HYPOTHYROIDISM
  3. SYNTHROID [Suspect]
     Indication: HYPOTHYROIDISM
     Dosage: UNIT DOSE IS DAILY AVERAGE
     Route: 048
     Dates: start: 20050101, end: 20120331
  4. SYNTHROID [Suspect]
     Dates: start: 20120401

REACTIONS (17)
  - FATIGUE [None]
  - GASTROINTESTINAL DISORDER [None]
  - HYPERSOMNIA [None]
  - NASOPHARYNGITIS [None]
  - TEMPERATURE INTOLERANCE [None]
  - HYPOHIDROSIS [None]
  - ASTHENIA [None]
  - DRUG INEFFECTIVE [None]
  - DEAFNESS [None]
  - DECREASED APPETITE [None]
  - WEIGHT INCREASED [None]
  - MEMORY IMPAIRMENT [None]
  - MUSCLE SPASMS [None]
  - FEELING ABNORMAL [None]
  - HYPOTHYROIDISM [None]
  - CARPAL TUNNEL SYNDROME [None]
  - DIZZINESS [None]
